FAERS Safety Report 7004125-6 (Version None)
Quarter: 2010Q3

REPORT INFORMATION
  Report Type: 
  Country: None (occurrence: None)
  Receive Date: 20100920
  Receipt Date: 20100202
  Transmission Date: 20110219
  Serious: No
  Sender: FDA-Public Use
  Company Number: US-WYE-H13410410

PATIENT
  Sex: Female
  Weight: 103.51 kg

DRUGS (5)
  1. PRISTIQ [Suspect]
     Indication: DEPRESSION
     Route: 048
     Dates: start: 20091001, end: 20091201
  2. KLONOPIN [Concomitant]
  3. GABAPENTIN [Concomitant]
  4. ALPRAZOLAM [Concomitant]
  5. LISINOPRIL [Concomitant]

REACTIONS (2)
  - ALOPECIA [None]
  - MADAROSIS [None]
